FAERS Safety Report 15979716 (Version 1)
Quarter: 2019Q1

REPORT INFORMATION
  Report Type: Spontaneous
  Country: US (occurrence: US)
  Receive Date: 20190217
  Receipt Date: 20190217
  Transmission Date: 20190418
  Serious: No
  Sender: FDA-Public Use
  Company Number: None

PATIENT
  Age: 59 Year
  Sex: Male
  Weight: 117 kg

DRUGS (1)
  1. BELSOMRA [Suspect]
     Active Substance: SUVOREXANT
     Indication: INSOMNIA
     Dosage: ?          QUANTITY:1 TABLET(S);?
     Route: 048
     Dates: start: 20190111, end: 20190216

REACTIONS (6)
  - Restlessness [None]
  - Drug ineffective [None]
  - Irritability [None]
  - Feeling abnormal [None]
  - Anxiety [None]
  - Mobility decreased [None]

NARRATIVE: CASE EVENT DATE: 20190215
